FAERS Safety Report 7407458-4 (Version None)
Quarter: 2011Q2

REPORT INFORMATION
  Report Type: 
  Country: None (occurrence: None)
  Receive Date: 20110411
  Receipt Date: 20110330
  Transmission Date: 20111010
  Serious: Yes (Death, Life-Threatening)
  Sender: FDA-Public Use
  Company Number: US-BAYER-2011-027830

PATIENT
  Age: 49 Year
  Sex: Male

DRUGS (6)
  1. AVELOX [Suspect]
     Indication: SINUSITIS
  2. HYPNOTICS AND SEDATIVES [Concomitant]
     Indication: SLEEP DISORDER
  3. AMITRIPTYLINE [Concomitant]
     Dosage: 50 MG, UNK
     Route: 048
  4. AVELOX [Suspect]
     Indication: PNEUMONIA
     Dosage: 400 MG, QD
     Route: 048
     Dates: start: 20110329
  5. ZOLOFT [Concomitant]
  6. QUINAPRIL [Concomitant]

REACTIONS (1)
  - DEATH [None]
